FAERS Safety Report 11590862 (Version 1)
Quarter: 2015Q4

REPORT INFORMATION
  Report Type: Spontaneous
  Country: RO (occurrence: RO)
  Receive Date: 20151002
  Receipt Date: 20151002
  Transmission Date: 20160304
  Serious: Yes (Death)
  Sender: FDA-Public Use
  Company Number: RO-ASTRAZENECA-2015SE93577

PATIENT
  Age: 65 Year
  Sex: Male

DRUGS (7)
  1. AZILECT [Concomitant]
     Active Substance: RASAGILINE MESYLATE
  2. FUROSEMIDE. [Concomitant]
     Active Substance: FUROSEMIDE
     Dosage: 10 MG EVERY 30 MINUTES
  3. DIGOXIN. [Concomitant]
     Active Substance: DIGOXIN
  4. BETALOC ZOK [Suspect]
     Active Substance: METOPROLOL SUCCINATE
     Route: 048
  5. SINTROM [Concomitant]
     Active Substance: ACENOCOUMAROL
     Dosage: FOR 2 YEARS
  6. COVERSYL [Concomitant]
     Active Substance: PERINDOPRIL
  7. NEUPRO [Concomitant]
     Active Substance: ROTIGOTINE

REACTIONS (1)
  - Cardiac arrest [Fatal]
